FAERS Safety Report 17967367 (Version 1)
Quarter: 2020Q3

REPORT INFORMATION
  Report Type: Spontaneous
  Country: DE (occurrence: DE)
  Receive Date: 20200701
  Receipt Date: 20200701
  Transmission Date: 20201103
  Serious: Yes (Other)
  Sender: FDA-Public Use
  Company Number: DE-TEVA-2020-DE-1793214

PATIENT
  Age: 31 Year
  Sex: Male
  Weight: 57 kg

DRUGS (2)
  1. MCP?RATIOPHARM [Suspect]
     Active Substance: METOCLOPRAMIDE HYDROCHLORIDE
     Indication: NAUSEA
     Dosage: UNIT DOSE: 30MG; DAILY DOSE: 30 MILLIGRAM EVERY DAYS 3 SEPARATED DOSES
     Dates: start: 20200508, end: 20200511
  2. MCP?RATIOPHARM [Suspect]
     Active Substance: METOCLOPRAMIDE HYDROCHLORIDE
     Indication: VOMITING

REACTIONS (1)
  - Pharyngeal dyskinesia [Recovered/Resolved]

NARRATIVE: CASE EVENT DATE: 20200511
